FAERS Safety Report 5745563-9 (Version None)
Quarter: 2008Q2

REPORT INFORMATION
  Report Type: 
  Country: None (occurrence: None)
  Receive Date: 20080521
  Receipt Date: 20080509
  Transmission Date: 20081010
  Serious: Yes (Hospitalization, Other)
  Sender: FDA-Public Use
  Company Number: US-PFIZER INC-2008026516

PATIENT
  Sex: Male
  Weight: 77.272 kg

DRUGS (5)
  1. VIAGRA [Suspect]
     Indication: ERECTILE DYSFUNCTION
  2. DILANTIN [Concomitant]
  3. NEOMYCIN [Concomitant]
  4. KEPPRA [Concomitant]
  5. ALL OTHER THERAPEUTIC PRODUCTS [Concomitant]

REACTIONS (4)
  - ANXIETY [None]
  - BLINDNESS [None]
  - CEREBROVASCULAR ACCIDENT [None]
  - SEPTIC SHOCK [None]
